FAERS Safety Report 4896266-4 (Version None)
Quarter: 2006Q1

REPORT INFORMATION
  Report Type: 
  Country: None (occurrence: None)
  Receive Date: 20060131
  Receipt Date: 20060119
  Transmission Date: 20060701
  Serious: Yes (Other)
  Sender: FDA-Public Use
  Company Number: NL-JNJFOC-20050304306

PATIENT
  Sex: Female

DRUGS (5)
  1. TRISPORAL [Suspect]
     Indication: DRUG USE FOR UNKNOWN INDICATION
     Route: 065
     Dates: start: 20050308
  2. NYSTATINE [Concomitant]
     Route: 048
  3. MIXTARD HUMAN 70/30 [Concomitant]
     Route: 065
  4. MIXTARD HUMAN 70/30 [Concomitant]
     Route: 065
  5. SIMVASTATIN [Concomitant]
     Route: 065

REACTIONS (2)
  - CHEST PAIN [None]
  - DYSPNOEA [None]
